FAERS Safety Report 20179724 (Version 1)
Quarter: 2021Q4

REPORT INFORMATION
  Report Type: Spontaneous
  Country: DE (occurrence: DE)
  Receive Date: 20211214
  Receipt Date: 20211214
  Transmission Date: 20220303
  Serious: Yes (Congenital Anomaly, Other)
  Sender: FDA-Public Use
  Company Number: DE-NOVARTISPH-NVSC2021DE279272

PATIENT
  Age: 4 Day
  Sex: Male
  Weight: 3.406 kg

DRUGS (4)
  1. AMITRIPTYLINE [Suspect]
     Active Substance: AMITRIPTYLINE
     Indication: Foetal exposure during pregnancy
     Dosage: MATERNAL DOSE: 50 [MG/D (BIS 25 MG/D) ]
     Route: 064
     Dates: start: 20200930, end: 20201118
  2. QUETIAPINE [Concomitant]
     Active Substance: QUETIAPINE
     Indication: Foetal exposure during pregnancy
     Dosage: MATERNAL DOSE: 100 [MG/D (BIS 50 MG/D) ]
     Route: 064
     Dates: start: 20200927, end: 20201021
  3. LEVOTHYROXINE SODIUM [Concomitant]
     Active Substance: LEVOTHYROXINE SODIUM
     Indication: Foetal exposure during pregnancy
     Dosage: 75 [?G/D ]
     Route: 064
     Dates: start: 20200930, end: 20210705
  4. PROMETHAZINE [Concomitant]
     Active Substance: PROMETHAZINE HYDROCHLORIDE
     Indication: Foetal exposure during pregnancy
     Dosage: UNTIL 4 MONTHS PRIOR TO CONCEPTION
     Route: 064

REACTIONS (2)
  - Congenital ureteropelvic junction obstruction [Unknown]
  - Foetal exposure during pregnancy [Unknown]

NARRATIVE: CASE EVENT DATE: 20210701
